FAERS Safety Report 10301900 (Version 1)
Quarter: 2014Q3

REPORT INFORMATION
  Report Type: Spontaneous
  Country: US (occurrence: None)
  Receive Date: 20140709
  Receipt Date: 20140709
  Transmission Date: 20150326
  Serious: No
  Sender: FDA-Public Use
  Company Number: None

PATIENT
  Sex: Female

DRUGS (22)
  1. PROCHORPER SUP [Concomitant]
  2. HYDFCHLCROT DAP [Concomitant]
  3. AFINITOR [Suspect]
     Active Substance: EVEROLIMUS
     Indication: BREAST CANCER
     Route: 048
     Dates: start: 20130214
  4. BENADRYL CAP [Concomitant]
  5. VALSARI/HCTZ TAB [Concomitant]
  6. BENADRYL CRE [Concomitant]
  7. AFINITOR TAB [Concomitant]
  8. FENTANYL. [Concomitant]
     Active Substance: FENTANYL
  9. AFINITOR [Suspect]
     Active Substance: EVEROLIMUS
     Indication: RENAL CANCER
     Route: 048
     Dates: start: 20130214
  10. MULTIVITAMIN TAB [Concomitant]
  11. ASPIRIN SUP [Concomitant]
  12. EXEMESTANE TAB [Concomitant]
  13. BENAZEPRIL TAB [Concomitant]
  14. EUCERIN [Concomitant]
     Active Substance: ENSULIZOLE\EUCERIN\OCTINOXATE\OCTISALATE\TITANIUM DIOXIDE\ZINC OXIDE
  15. CLARITIN-D TAB [Concomitant]
  16. IRON TABLET [Concomitant]
     Active Substance: IRON
  17. LORAZEPAM. [Concomitant]
     Active Substance: LORAZEPAM
  18. VIT CMT E CAP [Concomitant]
  19. CALCIUM TAB [Concomitant]
  20. LORAZEPAM INJ [Concomitant]
  21. LEVOTHROID TAB [Concomitant]
  22. AFINITOR TAB [Concomitant]

REACTIONS (1)
  - Paraesthesia [None]
